FAERS Safety Report 15400964 (Version 2)
Quarter: 2018Q4

REPORT INFORMATION
  Report Type: Report from Study
  Country: US (occurrence: US)
  Receive Date: 20180919
  Receipt Date: 20181015
  Transmission Date: 20190204
  Serious: Yes (Hospitalization, Other)
  Sender: FDA-Public Use
  Company Number: US-JNJFOC-20180639635

PATIENT
  Age: 69 Year
  Sex: Male

DRUGS (28)
  1. IMBRUVICA [Suspect]
     Active Substance: IBRUTINIB
     Indication: MANTLE CELL LYMPHOMA
     Route: 048
     Dates: start: 201707, end: 20170816
  2. IMBRUVICA [Suspect]
     Active Substance: IBRUTINIB
     Indication: NON-HODGKIN^S LYMPHOMA
     Route: 048
  3. IMBRUVICA [Suspect]
     Active Substance: IBRUTINIB
     Indication: NON-HODGKIN^S LYMPHOMA
     Route: 048
     Dates: start: 20180602
  4. FLOMAX [Concomitant]
     Active Substance: TAMSULOSIN HYDROCHLORIDE
  5. PRINZIDE [Concomitant]
     Active Substance: HYDROCHLOROTHIAZIDE\LISINOPRIL
     Dosage: 5 MG, DAILY
     Dates: start: 2012
  6. PROSCAR [Concomitant]
     Active Substance: FINASTERIDE
  7. AMOXICILLIN. [Concomitant]
     Active Substance: AMOXICILLIN
  8. IMBRUVICA [Suspect]
     Active Substance: IBRUTINIB
     Indication: NON-HODGKIN^S LYMPHOMA
     Route: 048
     Dates: start: 201707, end: 20170816
  9. PERCOCET [Concomitant]
     Active Substance: ACETAMINOPHEN\OXYCODONE HYDROCHLORIDE
     Indication: PAIN
     Dosage: 10/325 MG
  10. OMEPRAZOLE. [Concomitant]
     Active Substance: OMEPRAZOLE
     Indication: GASTROOESOPHAGEAL REFLUX DISEASE
  11. IMBRUVICA [Suspect]
     Active Substance: IBRUTINIB
     Indication: MANTLE CELL LYMPHOMA
     Route: 048
  12. CHLORHEXIDINE GLUCONATE. [Concomitant]
     Active Substance: CHLORHEXIDINE GLUCONATE
  13. MAGNESIUM [Concomitant]
     Active Substance: MAGNESIUM
  14. LASIX [Concomitant]
     Active Substance: FUROSEMIDE
  15. IMBRUVICA [Suspect]
     Active Substance: IBRUTINIB
     Indication: NON-HODGKIN^S LYMPHOMA
     Route: 048
     Dates: start: 20171031, end: 20180305
  16. IMBRUVICA [Suspect]
     Active Substance: IBRUTINIB
     Indication: MANTLE CELL LYMPHOMA
     Route: 048
     Dates: start: 20180602
  17. PROSCAR [Concomitant]
     Active Substance: FINASTERIDE
  18. XALATAN [Concomitant]
     Active Substance: LATANOPROST
     Dosage: INSTILL 1 DROP INTO BOTH EYES EVERYNIGHT AT BEDTIME
  19. IMBRUVICA [Suspect]
     Active Substance: IBRUTINIB
     Indication: MANTLE CELL LYMPHOMA
     Route: 048
     Dates: start: 20170707
  20. IMBRUVICA [Suspect]
     Active Substance: IBRUTINIB
     Indication: MANTLE CELL LYMPHOMA
     Route: 048
     Dates: start: 20171031, end: 20180305
  21. KLOR-CON [Concomitant]
     Active Substance: POTASSIUM CHLORIDE
     Dosage: 20 MG DAILY
     Route: 048
  22. JUBLIA [Concomitant]
     Active Substance: EFINACONAZOLE
     Dosage: APPLY TO AFFECTED AREA DAILY
  23. ZESTORETIC [Concomitant]
     Active Substance: HYDROCHLOROTHIAZIDE\LISINOPRIL
     Dosage: 1 TABLET PER DAY
     Route: 048
  24. IMBRUVICA [Suspect]
     Active Substance: IBRUTINIB
     Indication: NON-HODGKIN^S LYMPHOMA
     Route: 048
     Dates: start: 20170707
  25. BACTRIM [Suspect]
     Active Substance: SULFAMETHOXAZOLE\TRIMETHOPRIM
     Indication: PNEUMOCYSTIS JIROVECII PNEUMONIA
     Dates: start: 201804, end: 2018
  26. AMBIEN [Concomitant]
     Active Substance: ZOLPIDEM TARTRATE
     Indication: INSOMNIA
  27. KLOR-CON [Concomitant]
     Active Substance: POTASSIUM CHLORIDE
     Route: 048
  28. PREDNISONE. [Concomitant]
     Active Substance: PREDNISONE

REACTIONS (15)
  - Tonsillar exudate [Unknown]
  - Hiatus hernia [Unknown]
  - Atelectasis [Unknown]
  - Respiratory failure [Recovering/Resolving]
  - Hyperkalaemia [Recovering/Resolving]
  - Hip arthroplasty [Unknown]
  - Weight decreased [Unknown]
  - Cardiac failure congestive [Recovering/Resolving]
  - Pulmonary oedema [Unknown]
  - Splenomegaly [Unknown]
  - Ileus [Recovering/Resolving]
  - Pleural effusion [Recovering/Resolving]
  - Acute kidney injury [Recovering/Resolving]
  - Pneumocystis jirovecii pneumonia [Recovered/Resolved]
  - Leukopenia [Recovering/Resolving]

NARRATIVE: CASE EVENT DATE: 2017
